FAERS Safety Report 8843786 (Version 2)
Quarter: 2012Q4

REPORT INFORMATION
  Report Type: 
  Country: US (occurrence: US)
  Receive Date: 20121016
  Receipt Date: 20121108
  Transmission Date: 20130627
  Serious: Yes (Other)
  Sender: FDA-Public Use
  Company Number: US-VERTEX PHARMACEUTICAL INC.-2012-022291

PATIENT
  Age: 46 Year
  Sex: Male
  Weight: 61 kg

DRUGS (3)
  1. INCIVEK [Suspect]
     Indication: HEPATITIS C
     Dosage: 750 mg, tid
     Route: 048
     Dates: start: 20120817
  2. RIBAVIRIN [Suspect]
     Indication: HEPATITIS C
     Dosage: 1000 mg, qd
     Route: 048
     Dates: start: 20120817, end: 20120920
  3. PEGASYS [Suspect]
     Indication: HEPATITIS C
     Dosage: UNK, WEEKLY
     Route: 058
     Dates: start: 20120817, end: 20120920

REACTIONS (4)
  - Pancytopenia [Unknown]
  - Gingival bleeding [Unknown]
  - Asthenia [Not Recovered/Not Resolved]
  - Nausea [Not Recovered/Not Resolved]
